FAERS Safety Report 24193164 (Version 5)
Quarter: 2024Q4

REPORT INFORMATION
  Report Type: Spontaneous
  Country: US (occurrence: US)
  Receive Date: 20240809
  Receipt Date: 20241118
  Transmission Date: 20250115
  Serious: Yes (Hospitalization)
  Sender: CSL BEHRING
  Company Number: US-BEH-2024176943

PATIENT
  Age: 67 Year
  Sex: Female

DRUGS (3)
  1. HAEGARDA [Suspect]
     Active Substance: HUMAN C1-ESTERASE INHIBITOR
     Indication: Hereditary angioedema
     Dosage: 4000 IU, BIW
     Route: 058
     Dates: start: 202212
  2. HAEGARDA [Suspect]
     Active Substance: HUMAN C1-ESTERASE INHIBITOR
     Indication: Prophylaxis
  3. ICATIBANT ACETATE [Concomitant]
     Active Substance: ICATIBANT ACETATE
     Indication: Hereditary angioedema

REACTIONS (5)
  - Dizziness [Unknown]
  - Pain in extremity [Unknown]
  - Contusion [Unknown]
  - Depression [Unknown]
  - Social avoidant behaviour [Unknown]

NARRATIVE: CASE EVENT DATE: 20240818
